FAERS Safety Report 10043314 (Version 1)
Quarter: 2014Q1

REPORT INFORMATION
  Report Type: Spontaneous
  Country: US (occurrence: None)
  Receive Date: 20140327
  Receipt Date: 20140327
  Transmission Date: 20141002
  Serious: Yes (Disabling)
  Sender: FDA-Public Use
  Company Number: None

PATIENT
  Age: 45 Year
  Sex: Female
  Weight: 59.88 kg

DRUGS (4)
  1. OMEPRAZOLE [Suspect]
     Indication: HYPERCHLORHYDRIA
     Dosage: 1 PILLS, TWICE DAILY, TAKEN BY MOUTH
     Route: 048
  2. OMEPRAZOLE [Suspect]
     Indication: DIARRHOEA
     Dosage: 1 PILLS, TWICE DAILY, TAKEN BY MOUTH
     Route: 048
  3. OMEPRAZOLE [Suspect]
     Indication: NAUSEA
     Dosage: 1 PILLS, TWICE DAILY, TAKEN BY MOUTH
     Route: 048
  4. OMEPRAZOLE [Suspect]
     Indication: DYSPEPSIA
     Dosage: 1 PILLS, TWICE DAILY, TAKEN BY MOUTH
     Route: 048

REACTIONS (3)
  - Muscle spasms [None]
  - Fibromyalgia [None]
  - Screaming [None]
